FAERS Safety Report 9600955 (Version 1)
Quarter: 2013Q4

REPORT INFORMATION
  Report Type: Spontaneous
  Country: US (occurrence: US)
  Receive Date: 20131004
  Receipt Date: 20131004
  Transmission Date: 20140711
  Serious: No
  Sender: FDA-Public Use
  Company Number: US-AMGEN-USASP2013038195

PATIENT
  Age: 33 Year
  Sex: Female
  Weight: 68.03 kg

DRUGS (9)
  1. ENBREL [Suspect]
     Indication: PRODUCT USED FOR UNKNOWN INDICATION
     Dosage: 50 MG, QWK
     Route: 058
  2. OMEPRAZOLE [Concomitant]
     Dosage: 40 MG, UNK
  3. OXYBUTYNIN [Concomitant]
     Dosage: 5 MG, UNK
  4. SIMVASTATIN [Concomitant]
     Dosage: 40 MG, UNK
  5. TOPIRAMATE [Concomitant]
     Dosage: 15 MG, UNK
  6. LORATADINE [Concomitant]
     Dosage: 5 MG/5ML, UNK
  7. VITAMIN B12                        /00056201/ [Concomitant]
     Dosage: 2000 MUG, UNK
  8. BIOTENE                            /03475601/ [Concomitant]
     Dosage: UNK
  9. ZOMIG [Concomitant]
     Dosage: 2.5 MG, UNK

REACTIONS (1)
  - Injection site erythema [Unknown]
